FAERS Safety Report 22755790 (Version 2)
Quarter: 2024Q4

REPORT INFORMATION
  Report Type: Report from Study
  Country: CA (occurrence: CA)
  Receive Date: 20230727
  Receipt Date: 20241224
  Transmission Date: 20250115
  Serious: Yes (Other)
  Sender: VIIV
  Company Number: CA-VIIV HEALTHCARE LIMITED-CA2023101145

PATIENT

DRUGS (6)
  1. CABOTEGRAVIR\RILPIVIRINE [Suspect]
     Active Substance: CABOTEGRAVIR\RILPIVIRINE
     Indication: HIV infection
     Dosage: UNK UNK, Q2M (600MG/3ML CABOTEGRAVIR, 900MG/3ML RILPIVIRINE)
     Route: 030
     Dates: start: 20230721
  2. CABOTEGRAVIR\RILPIVIRINE [Suspect]
     Active Substance: CABOTEGRAVIR\RILPIVIRINE
  3. CABOTEGRAVIR\RILPIVIRINE [Suspect]
     Active Substance: CABOTEGRAVIR\RILPIVIRINE
  4. CABOTEGRAVIR\RILPIVIRINE [Suspect]
     Active Substance: CABOTEGRAVIR\RILPIVIRINE
     Indication: HIV infection
     Dosage: UNK UNK, Q2M, 600MG/3ML) CABOTEGRAVIR INJECTION AND (900MG/3ML) RILPIVIRINE INJECTION
     Route: 030
  5. CABOTEGRAVIR\RILPIVIRINE [Suspect]
     Active Substance: CABOTEGRAVIR\RILPIVIRINE
     Indication: HIV infection
     Dosage: UNK UNK, Q2M, (600MG/3ML) CABOTEGRAVIR AND (900MG/3ML) RILPIVIRINE
     Route: 030
  6. CABOTEGRAVIR\RILPIVIRINE [Suspect]
     Active Substance: CABOTEGRAVIR\RILPIVIRINE
     Indication: HIV infection
     Dosage: UNK, CABOTEGRAVIR 600MG/3ML AND RILPIVIRINE 900MG/3ML
     Route: 030

REACTIONS (12)
  - Loss of consciousness [Unknown]
  - Hyperhidrosis [Unknown]
  - Urinary incontinence [Unknown]
  - Malaise [Unknown]
  - Road traffic accident [Unknown]
  - Wrist fracture [Unknown]
  - Pain [Recovering/Resolving]
  - Injection site pain [Recovered/Resolved]
  - Injection site discomfort [Unknown]
  - Musculoskeletal stiffness [Recovered/Resolved]
  - Fatigue [Recovered/Resolved]
  - Haemorrhage [Unknown]

NARRATIVE: CASE EVENT DATE: 20230721
